FAERS Safety Report 9090574 (Version 1)
Quarter: 2013Q1

REPORT INFORMATION
  Report Type: Report from Study
  Country: MX (occurrence: MX)
  Receive Date: 20130131
  Receipt Date: 20130131
  Transmission Date: 20140127
  Serious: Yes (Other)
  Sender: FDA-Public Use
  Company Number: MX-ROCHE-1185299

PATIENT
  Age: 68 Year
  Sex: Male
  Weight: 60 kg

DRUGS (2)
  1. AVASTIN [Suspect]
     Indication: RENAL CANCER
     Route: 065
  2. ROFERON-A [Suspect]
     Indication: RENAL CANCER
     Route: 065

REACTIONS (1)
  - Rash [Unknown]
